FAERS Safety Report 9334961 (Version 1)
Quarter: 2013Q2

REPORT INFORMATION
  Report Type: Spontaneous
  Country: CA (occurrence: CA)
  Receive Date: 20130606
  Receipt Date: 20130606
  Transmission Date: 20140414
  Serious: Yes (Hospitalization, Other)
  Sender: FDA-Public Use
  Company Number: CA-ROCHE-1231271

PATIENT
  Age: 61 Year
  Sex: Male
  Weight: 73.9 kg

DRUGS (9)
  1. RITUXAN [Suspect]
     Indication: NON-HODGKIN^S LYMPHOMA
     Route: 042
     Dates: start: 201005, end: 201011
  2. RITUXAN [Suspect]
     Indication: WHITE BLOOD CELL COUNT INCREASED
  3. CYCLOPHOSPHAMIDE [Suspect]
     Indication: NON-HODGKIN^S LYMPHOMA
     Route: 065
  4. DOXORUBICIN [Suspect]
     Indication: NON-HODGKIN^S LYMPHOMA
     Route: 065
  5. VINCRISTINE [Suspect]
     Indication: NON-HODGKIN^S LYMPHOMA
     Route: 065
  6. PREDNISONE [Suspect]
     Indication: NON-HODGKIN^S LYMPHOMA
     Route: 065
  7. RABEPRAZOLE [Concomitant]
     Route: 065
     Dates: start: 201110
  8. VALACICLOVIR [Concomitant]
     Route: 065
     Dates: start: 201110
  9. SYNTHROID [Concomitant]

REACTIONS (6)
  - Stem cell transplant [Unknown]
  - Graft versus host disease [Not Recovered/Not Resolved]
  - Osteoporosis [Not Recovered/Not Resolved]
  - Prostatic disorder [Not Recovered/Not Resolved]
  - Weight decreased [Not Recovered/Not Resolved]
  - Hair disorder [Not Recovered/Not Resolved]
